FAERS Safety Report 25063790 (Version 1)
Quarter: 2025Q1

REPORT INFORMATION
  Report Type: Spontaneous
  Country: US (occurrence: None)
  Receive Date: 20250311
  Receipt Date: 20250311
  Transmission Date: 20250408
  Serious: Yes (Other)
  Sender: FDA-CTU
  Company Number: None

PATIENT
  Age: 23 Year
  Sex: Female
  Weight: 56.25 kg

DRUGS (1)
  1. CORLANOR [Suspect]
     Active Substance: IVABRADINE HYDROCHLORIDE
     Indication: Postural orthostatic tachycardia syndrome
     Dosage: OTHER STRENGTH : 5MG 2.5MG BID;?OTHER QUANTITY : 1/2 TAB BID;?FREQUENCY : TWICE A DAY;?
     Route: 048
     Dates: start: 202309, end: 20231020

REACTIONS (2)
  - Dizziness [None]
  - Dizziness [None]

NARRATIVE: CASE EVENT DATE: 20231017
